FAERS Safety Report 16275595 (Version 2)
Quarter: 2019Q2

REPORT INFORMATION
  Report Type: Spontaneous
  Country: BR (occurrence: BR)
  Receive Date: 20190506
  Receipt Date: 20190513
  Transmission Date: 20190711
  Serious: Yes (Other)
  Sender: FDA-Public Use
  Company Number: BR-SA-2019SA119924

PATIENT
  Sex: Female

DRUGS (1)
  1. LANTUS [Suspect]
     Active Substance: INSULIN GLARGINE
     Dosage: UNK, UNK
     Route: 065

REACTIONS (5)
  - Mood altered [Unknown]
  - Depression [Not Recovered/Not Resolved]
  - Abnormal behaviour [Unknown]
  - Dementia Alzheimer^s type [Not Recovered/Not Resolved]
  - Tremor [Recovering/Resolving]
